FAERS Safety Report 5754213-7 (Version None)
Quarter: 2008Q2

REPORT INFORMATION
  Report Type: 
  Country: None (occurrence: None)
  Receive Date: 20080530
  Receipt Date: 20080520
  Transmission Date: 20081010
  Serious: Yes (Other)
  Sender: FDA-Public Use
  Company Number: US-PFIZER INC-2008026868

PATIENT
  Sex: Female
  Weight: 64.9 kg

DRUGS (9)
  1. CHANTIX [Suspect]
     Indication: SMOKING CESSATION THERAPY
  2. GABAPENTIN [Concomitant]
  3. SONATA [Concomitant]
  4. SPIRIVA [Concomitant]
  5. ALBUTEROL [Concomitant]
  6. XANAX [Concomitant]
  7. SYNTHROID [Concomitant]
  8. WELLBUTRIN [Concomitant]
  9. MOMETASONE FUROATE [Concomitant]

REACTIONS (8)
  - ABNORMAL DREAMS [None]
  - ANGER [None]
  - BIPOLAR I DISORDER [None]
  - CRYING [None]
  - DIZZINESS [None]
  - HEAD INJURY [None]
  - LOSS OF CONSCIOUSNESS [None]
  - SUICIDAL IDEATION [None]
